FAERS Safety Report 20349797 (Version 1)
Quarter: 2022Q1

REPORT INFORMATION
  Report Type: Spontaneous
  Country: IN (occurrence: IN)
  Receive Date: 20220119
  Receipt Date: 20220119
  Transmission Date: 20220423
  Serious: Yes (Other)
  Sender: FDA-Public Use
  Company Number: IN-STRIDES ARCOLAB LIMITED-2022SP000457

PATIENT
  Age: 71 Year
  Sex: Female

DRUGS (7)
  1. PREDNISOLONE [Suspect]
     Active Substance: PREDNISOLONE
     Indication: COVID-19
     Dosage: 60 MILLIGRAM PER DAY
     Route: 065
     Dates: start: 2021, end: 2021
  2. PREDNISOLONE [Suspect]
     Active Substance: PREDNISOLONE
     Dosage: UNK (SLOWLY TAPERED OFF OVER 21 DAYS)
     Route: 065
     Dates: start: 2021, end: 2021
  3. AZITHROMYCIN [Concomitant]
     Active Substance: AZITHROMYCIN
     Indication: COVID-19
     Dosage: UNK
     Route: 065
     Dates: start: 2021
  4. TOFACITINIB [Concomitant]
     Active Substance: TOFACITINIB
     Indication: COVID-19
     Dosage: 5 MILLIGRAM, TWICE DAILY (INITIAL 5 DAYS)
     Route: 048
     Dates: start: 2021, end: 2021
  5. TOFACITINIB [Concomitant]
     Active Substance: TOFACITINIB
     Dosage: 5 MILLIGRAM DAILY (NEXT 5 DAYS)
     Route: 048
     Dates: start: 2021, end: 2021
  6. METHYLPREDNISOLONE [Concomitant]
     Active Substance: METHYLPREDNISOLONE
     Indication: COVID-19
     Dosage: UNK
     Route: 065
     Dates: start: 2021, end: 2021
  7. APIXABAN [Concomitant]
     Active Substance: APIXABAN
     Indication: Anticoagulant therapy
     Dosage: 5 MILLIGRAM PER DAY
     Route: 065
     Dates: start: 2021

REACTIONS (2)
  - Multiple organ dysfunction syndrome [Unknown]
  - Off label use [Unknown]

NARRATIVE: CASE EVENT DATE: 20210101
